FAERS Safety Report 14406360 (Version 1)
Quarter: 2018Q1

REPORT INFORMATION
  Report Type: Spontaneous
  Country: RU (occurrence: RU)
  Receive Date: 20180118
  Receipt Date: 20180118
  Transmission Date: 20180509
  Serious: Yes (Other)
  Sender: FDA-Public Use
  Company Number: RU-GLAXOSMITHKLINE-RU2018GSK007699

PATIENT
  Age: 3 Year
  Sex: Female
  Weight: 19 kg

DRUGS (1)
  1. ZINNAT [Suspect]
     Active Substance: CEFUROXIME AXETIL
     Indication: EAR INFECTION
     Dosage: 1 DF, BID, TABLET
     Dates: start: 20161208, end: 20161212

REACTIONS (6)
  - Tonsillitis [Unknown]
  - Drug ineffective [Unknown]
  - Purulence [Unknown]
  - Pyrexia [Unknown]
  - Condition aggravated [Unknown]
  - Oropharyngeal pain [Unknown]
